FAERS Safety Report 20691603 (Version 1)
Quarter: 2022Q2

REPORT INFORMATION
  Report Type: Spontaneous
  Country: CN (occurrence: CN)
  Receive Date: 20220408
  Receipt Date: 20220408
  Transmission Date: 20220721
  Serious: Yes (Other)
  Sender: FDA-Public Use
  Company Number: CN-BoehringerIngelheim-2022-BI-162373

PATIENT
  Age: 70 Year
  Sex: Male
  Weight: 70 kg

DRUGS (2)
  1. ALTEPLASE [Suspect]
     Active Substance: ALTEPLASE
     Indication: Cerebral infarction
     Dosage: 6.3MG WITHIN 1MIN
     Route: 042
     Dates: start: 20220322, end: 20220322
  2. ALTEPLASE [Suspect]
     Active Substance: ALTEPLASE
     Dosage: CONTINUOUS MICROPUMP OF ALTEPLASE 53.7MG WAS PLANNED WITHIN 59MIN
     Route: 042
     Dates: start: 20220322, end: 20220322

REACTIONS (5)
  - Hemiplegia [Not Recovered/Not Resolved]
  - Cerebral haemorrhage [Not Recovered/Not Resolved]
  - Brain herniation [Not Recovered/Not Resolved]
  - Confusional state [Not Recovered/Not Resolved]
  - Vomiting [Not Recovered/Not Resolved]

NARRATIVE: CASE EVENT DATE: 20220322
